FAERS Safety Report 6266615-3 (Version None)
Quarter: 2009Q3

REPORT INFORMATION
  Report Type: 
  Country: None (occurrence: None)
  Receive Date: 20090709
  Receipt Date: 20090624
  Transmission Date: 20100115
  Serious: Yes (Hospitalization)
  Sender: FDA-Public Use
  Company Number: 237071K09USA

PATIENT
  Age: 46 Year
  Sex: Female

DRUGS (3)
  1. REBIF [Suspect]
     Indication: MULTIPLE SCLEROSIS
     Dosage: 44 MCG, 3 IN 1 WEEKS, SUBCUTANEOUS
     Route: 058
     Dates: start: 20020617, end: 20090201
  2. TIZANIDINE HCL [Concomitant]
  3. CLOBETASOL (CLOBETASOL) [Concomitant]

REACTIONS (4)
  - ABASIA [None]
  - CELLULITIS [None]
  - DRUG HYPERSENSITIVITY [None]
  - SKIN LACERATION [None]
